FAERS Safety Report 8215876-X (Version None)
Quarter: 2012Q1

REPORT INFORMATION
  Report Type: 
  Country: None (occurrence: None)
  Receive Date: 20120316
  Receipt Date: 20120308
  Transmission Date: 20120608
  Serious: Yes (Hospitalization, Disabling, Other)
  Sender: FDA-Public Use
  Company Number: US-MERCK-1109USA01359

PATIENT
  Age: 58 Year
  Sex: Female

DRUGS (8)
  1. FOSAMAX [Suspect]
     Route: 048
     Dates: start: 20070401, end: 20080129
  2. FOSAMAX [Suspect]
     Indication: OSTEOPOROSIS
     Route: 048
     Dates: start: 20020201, end: 20050601
  3. FOSAMAX [Suspect]
     Route: 048
     Dates: start: 20051101, end: 20060101
  4. FOSAMAX [Suspect]
     Indication: OSTEOPENIA
     Route: 048
     Dates: start: 20020201, end: 20050601
  5. FOSAMAX [Suspect]
     Route: 048
     Dates: start: 20051101, end: 20060101
  6. FOSAMAX [Suspect]
     Route: 048
     Dates: start: 20070401, end: 20080129
  7. BONIVA [Suspect]
     Route: 042
     Dates: start: 20080129, end: 20090101
  8. FORTEO [Suspect]
     Route: 065
     Dates: start: 20050601, end: 20051101

REACTIONS (42)
  - FEMUR FRACTURE [None]
  - ANAEMIA POSTOPERATIVE [None]
  - MYOPATHY [None]
  - MASTOIDITIS [None]
  - LUNG DISORDER [None]
  - AORTIC CALCIFICATION [None]
  - ARACHNOID CYST [None]
  - ADVERSE DRUG REACTION [None]
  - CEREBRAL ISCHAEMIA [None]
  - HYPERPARATHYROIDISM [None]
  - ANXIETY [None]
  - HYPERCALCAEMIA [None]
  - SINUS POLYP [None]
  - DEVICE FAILURE [None]
  - WEIGHT INCREASED [None]
  - SKIN PAPILLOMA [None]
  - THROAT IRRITATION [None]
  - ROTATOR CUFF SYNDROME [None]
  - NEUROPATHY PERIPHERAL [None]
  - NASAL CONGESTION [None]
  - LOW TURNOVER OSTEOPATHY [None]
  - RESPIRATORY TRACT INFECTION [None]
  - DIABETES MELLITUS [None]
  - COUGH [None]
  - FRACTURE DELAYED UNION [None]
  - FALL [None]
  - JOINT EFFUSION [None]
  - GAIT DISTURBANCE [None]
  - MUSCULAR WEAKNESS [None]
  - PNEUMONITIS [None]
  - PAIN IN EXTREMITY [None]
  - BALANCE DISORDER [None]
  - HEPATIC STEATOSIS [None]
  - HEPATOMEGALY [None]
  - IMPAIRED HEALING [None]
  - OSTEOARTHRITIS [None]
  - SINUSITIS [None]
  - LIVER FUNCTION TEST ABNORMAL [None]
  - WAIST CIRCUMFERENCE INCREASED [None]
  - GRANULOMA [None]
  - FEAR [None]
  - CHRONIC OBSTRUCTIVE PULMONARY DISEASE [None]
